FAERS Safety Report 8714761 (Version 5)
Quarter: 2013Q1

REPORT INFORMATION
  Report Type: Report from Study
  Country: IN (occurrence: IN)
  Receive Date: 20120809
  Receipt Date: 20130327
  Transmission Date: 20140127
  Serious: Yes (Death, Life-Threatening, Hospitalization)
  Sender: FDA-Public Use
  Company Number: IN-BRISTOL-MYERS SQUIBB COMPANY-16825507

PATIENT
  Age: 54 Year
  Sex: Male
  Weight: 65 kg

DRUGS (7)
  1. CISPLATIN [Suspect]
     Indication: NON-SMALL CELL LUNG CANCER STAGE III
     Dosage: D1 + D8 EACH CYCLE. LAST DOSE:11JUN12
     Route: 042
     Dates: start: 20120604, end: 20120611
  2. ETOPOSIDE [Suspect]
     Indication: NON-SMALL CELL LUNG CANCER STAGE III
     Dosage: D1-D5 EACH CYCLE,LAST DOSE:8JUN12
     Route: 042
     Dates: start: 20120604, end: 20120608
  3. SALT [Concomitant]
     Indication: HYPONATRAEMIA
     Dates: start: 20120613, end: 20120618
  4. PARACETAMOL [Concomitant]
     Indication: PYREXIA
     Dates: start: 20120617, end: 20120620
  5. APREPITANT [Concomitant]
     Indication: PROPHYLAXIS OF NAUSEA AND VOMITING
     Dates: start: 20120611, end: 20120613
  6. ONDANSETRON [Concomitant]
     Indication: PROPHYLAXIS OF NAUSEA AND VOMITING
     Dates: start: 20120611, end: 20120613
  7. RANITIDINE [Concomitant]
     Indication: ANAPHYLAXIS PROPHYLAXIS
     Dates: start: 20120611, end: 20120613

REACTIONS (6)
  - Hypovolaemic shock [Fatal]
  - Sepsis [Fatal]
  - Tracheal haemorrhage [Not Recovered/Not Resolved]
  - Febrile neutropenia [Recovered/Resolved]
  - Hyponatraemia [Recovered/Resolved]
  - Renal failure acute [Not Recovered/Not Resolved]
